FAERS Safety Report 10438347 (Version 2)
Quarter: 2014Q3

REPORT INFORMATION
  Report Type: Spontaneous
  Country: US (occurrence: US)
  Receive Date: 20140908
  Receipt Date: 20140908
  Transmission Date: 20150326
  Serious: No
  Sender: FDA-Public Use
  Company Number: US-BRISTOL-MYERS SQUIBB COMPANY-19841568

PATIENT
  Age: 52 Year
  Sex: Female
  Weight: 113.38 kg

DRUGS (5)
  1. ABILIFY [Suspect]
     Active Substance: ARIPIPRAZOLE
     Indication: ANXIETY
     Dosage: ONGOING
     Dates: start: 20131102
  2. SERTRALINE [Concomitant]
     Active Substance: SERTRALINE HYDROCHLORIDE
  3. AMBIEN [Suspect]
     Active Substance: ZOLPIDEM TARTRATE
     Route: 048
  4. ABILIFY [Suspect]
     Active Substance: ARIPIPRAZOLE
     Indication: DEPRESSION
     Dosage: ONGOING
     Dates: start: 20131102
  5. SIMVASTATIN. [Concomitant]
     Active Substance: SIMVASTATIN

REACTIONS (6)
  - Dizziness [Recovering/Resolving]
  - Nausea [Recovering/Resolving]
  - Disturbance in attention [Recovering/Resolving]
  - Dysgraphia [Recovering/Resolving]
  - Somnolence [Recovering/Resolving]
  - Reading disorder [Recovering/Resolving]
